FAERS Safety Report 9219940 (Version 1)
Quarter: 2013Q2

REPORT INFORMATION
  Report Type: Spontaneous
  Country: ES (occurrence: ES)
  Receive Date: 20130409
  Receipt Date: 20130409
  Transmission Date: 20140414
  Serious: Yes (Hospitalization)
  Sender: FDA-Public Use
  Company Number: ES-ROCHE-1211063

PATIENT
  Age: 66 Year
  Sex: Male

DRUGS (6)
  1. MABTHERA [Suspect]
     Indication: NON-HODGKIN^S LYMPHOMA
     Route: 042
     Dates: start: 20120927, end: 20120927
  2. ETOPOSIDE [Suspect]
     Indication: NON-HODGKIN^S LYMPHOMA
     Route: 042
     Dates: start: 20120927, end: 20120930
  3. CISPLATINE [Suspect]
     Indication: NON-HODGKIN^S LYMPHOMA
     Route: 042
     Dates: start: 20120927, end: 20120930
  4. CYTARABINE [Suspect]
     Indication: NON-HODGKIN^S LYMPHOMA
     Route: 042
     Dates: start: 20121001, end: 20121001
  5. METHYLPREDNISOLONE [Concomitant]
     Route: 042
     Dates: start: 20120927, end: 20121001
  6. OMEPRAZOLE [Concomitant]
     Route: 048
     Dates: start: 20120926, end: 20121003

REACTIONS (1)
  - Hepatitis acute [Recovered/Resolved]
